FAERS Safety Report 8105045-6 (Version None)
Quarter: 2012Q1

REPORT INFORMATION
  Report Type: 
  Country: None (occurrence: None)
  Receive Date: 20120130
  Receipt Date: 20120116
  Transmission Date: 20120608
  Serious: Yes (Hospitalization)
  Sender: FDA-Public Use
  Company Number: GB-ROCHE-1033419

PATIENT
  Sex: Female

DRUGS (6)
  1. BISOPROLOL [Concomitant]
  2. SIMVASTATIN [Concomitant]
  3. RANITIDINE [Concomitant]
  4. HUMULIN R [Concomitant]
  5. LUCENTIS [Suspect]
     Indication: AGE-RELATED MACULAR DEGENERATION
     Route: 050
     Dates: start: 20110721
  6. CLOPIDOGREL [Concomitant]

REACTIONS (1)
  - MALAISE [None]
